FAERS Safety Report 7813413-2 (Version None)
Quarter: 2011Q4

REPORT INFORMATION
  Report Type: 
  Country: None (occurrence: None)
  Receive Date: 20111014
  Receipt Date: 20111006
  Transmission Date: 20120403
  Serious: Yes (Other)
  Sender: FDA-Public Use
  Company Number: US-BIOGENIDEC-2011BI017388

PATIENT
  Age: 48 Year
  Sex: Female

DRUGS (33)
  1. TRAMADOL HCL [Concomitant]
     Route: 048
  2. BACLOFEN [Concomitant]
     Route: 048
  3. NEURONTIN [Concomitant]
     Route: 048
  4. OMEPRAZOLE [Concomitant]
     Route: 048
  5. NEURONTIN [Concomitant]
     Route: 048
  6. PEDIALYTE [Concomitant]
  7. HYDROCHLOROTHIAZIDE [Concomitant]
     Route: 048
  8. ASPIRIN [Concomitant]
  9. FISH OIL [Concomitant]
     Route: 048
  10. DIOVAN [Concomitant]
     Route: 048
  11. SEROQUEL [Concomitant]
     Route: 048
  12. TRIAMTERENE [Concomitant]
     Route: 048
  13. NEURONTIN [Concomitant]
     Indication: NEURALGIA
     Route: 048
  14. VITAMIN E [Concomitant]
     Route: 048
  15. VITAMIN B-12 [Concomitant]
     Route: 048
  16. EPIDRIN [Concomitant]
     Route: 048
  17. CELEXA [Concomitant]
     Route: 048
  18. TRICOR [Concomitant]
     Route: 048
  19. MECLIZINE [Concomitant]
     Route: 048
  20. CENTRUM [Concomitant]
     Route: 048
  21. ASPIRIN [Concomitant]
     Route: 048
  22. HYOSCYAMINE SULFATE [Concomitant]
  23. MUCINEX DM [Concomitant]
     Indication: COUGH
  24. ATENOLOL [Concomitant]
     Route: 048
  25. WELLBUTRIN XL [Concomitant]
     Route: 048
  26. CALCIUM CARBONATE [Concomitant]
     Route: 048
  27. VITAMIN B6 [Concomitant]
     Route: 048
  28. PROMETHAZINE [Concomitant]
  29. IMODIUM [Concomitant]
  30. TYSABRI [Suspect]
     Indication: MULTIPLE SCLEROSIS
     Route: 042
     Dates: start: 20070718
  31. FISH OIL [Concomitant]
     Route: 048
  32. VITAMIN D [Concomitant]
     Route: 048
  33. IMITREX [Concomitant]
     Indication: MIGRAINE
     Route: 048

REACTIONS (1)
  - ELECTROENCEPHALOGRAM ABNORMAL [None]
